FAERS Safety Report 7419536-4 (Version None)
Quarter: 2011Q2

REPORT INFORMATION
  Report Type: 
  Country: None (occurrence: None)
  Receive Date: 20110418
  Receipt Date: 20110413
  Transmission Date: 20111010
  Serious: Yes (Death)
  Sender: FDA-Public Use
  Company Number: PHHY2011AR31313

PATIENT
  Sex: Female

DRUGS (1)
  1. EXFORGE HCT [Suspect]

REACTIONS (1)
  - INTESTINAL OBSTRUCTION [None]
